FAERS Safety Report 6548661-5 (Version None)
Quarter: 2010Q1

REPORT INFORMATION
  Report Type: 
  Country: None (occurrence: None)
  Receive Date: 20100124
  Receipt Date: 20091006
  Transmission Date: 20100710
  Serious: No
  Sender: FDA-Public Use
  Company Number: US-ALLERGAN-0913863US

PATIENT
  Age: 78 Year
  Sex: Female

DRUGS (4)
  1. RESTASIS [Suspect]
     Indication: DRY EYE
     Dosage: UNK
     Route: 047
  2. PLAVIX [Concomitant]
     Indication: HYPERTENSION
  3. LIPITOR [Concomitant]
     Indication: HYPERTENSION
  4. EXFORGE [Concomitant]
     Indication: HYPERTENSION

REACTIONS (2)
  - EYE IRRITATION [None]
  - EYE PAIN [None]
